FAERS Safety Report 24420811 (Version 2)
Quarter: 2024Q4

REPORT INFORMATION
  Report Type: Report from Study
  Country: IN (occurrence: IN)
  Receive Date: 20241010
  Receipt Date: 20241018
  Transmission Date: 20250114
  Serious: No
  Sender: ROCHE
  Company Number: IN-BoehringerIngelheim-2024-BI-028351

PATIENT
  Age: 85 Year
  Sex: Female

DRUGS (1)
  1. ALTEPLASE [Suspect]
     Active Substance: ALTEPLASE
     Indication: Product used for unknown indication
     Dosage: FORM STRENGTH: 0.9 MILLIGRAM(S)/KILOGRAM
     Route: 065

REACTIONS (1)
  - Subcutaneous haematoma [Unknown]
